FAERS Safety Report 25851930 (Version 1)
Quarter: 2025Q3

REPORT INFORMATION
  Report Type: Spontaneous
  Country: EU (occurrence: EU)
  Receive Date: 20250926
  Receipt Date: 20250926
  Transmission Date: 20251021
  Serious: Yes (Hospitalization, Other)
  Sender: BAUSCH AND LOMB
  Company Number: EU-GRUNENTHAL-2025-110761

PATIENT
  Age: 33 Year
  Sex: Male

DRUGS (21)
  1. DIAZEPAM [Suspect]
     Active Substance: DIAZEPAM
     Indication: Mixed anxiety and depressive disorder
     Route: 065
  2. DIAZEPAM [Suspect]
     Active Substance: DIAZEPAM
     Indication: Exercise tolerance increased
     Route: 065
  3. TESTOSTERONE [Suspect]
     Active Substance: TESTOSTERONE
     Indication: Exercise tolerance increased
     Route: 065
  4. HYDROXYZINE HYDROCHLORIDE [Suspect]
     Active Substance: HYDROXYZINE HYDROCHLORIDE
     Indication: Mixed anxiety and depressive disorder
     Route: 065
  5. HYDROXYZINE HYDROCHLORIDE [Suspect]
     Active Substance: HYDROXYZINE HYDROCHLORIDE
     Indication: Exercise tolerance increased
     Route: 065
  6. TELMISARTAN [Suspect]
     Active Substance: TELMISARTAN
     Indication: Product used for unknown indication
     Route: 065
  7. ALPRAZOLAM [Suspect]
     Active Substance: ALPRAZOLAM
     Indication: Mixed anxiety and depressive disorder
     Dosage: 0.5 MG, DAILY (/24 H)
     Route: 065
  8. ALPRAZOLAM [Suspect]
     Active Substance: ALPRAZOLAM
     Indication: Exercise tolerance increased
     Dosage: 1.5 MILLIGRAM, ONCE A DAY
     Route: 065
  9. ALPRAZOLAM [Suspect]
     Active Substance: ALPRAZOLAM
     Dosage: 1 MG, DAILY (/24 H)
     Route: 065
  10. ANASTROZOLE [Suspect]
     Active Substance: ANASTROZOLE
     Indication: Exercise tolerance increased
     Route: 065
  11. CABERGOLINE [Suspect]
     Active Substance: CABERGOLINE
     Indication: Exercise tolerance increased
     Route: 065
  12. CABERGOLINE [Suspect]
     Active Substance: CABERGOLINE
     Route: 065
  13. CITALOPRAM [Suspect]
     Active Substance: CITALOPRAM
     Indication: Mixed anxiety and depressive disorder
     Route: 065
  14. CITALOPRAM [Suspect]
     Active Substance: CITALOPRAM
     Indication: Exercise tolerance increased
     Route: 065
  15. NANDROLONE [Suspect]
     Active Substance: NANDROLONE
     Indication: Steroid therapy
     Route: 065
  16. NANDROLONE [Suspect]
     Active Substance: NANDROLONE
     Indication: Supplementation therapy
     Route: 065
  17. SOMATROPIN [Suspect]
     Active Substance: SOMATROPIN
     Indication: Blood growth hormone
     Route: 065
  18. SOMATROPIN [Suspect]
     Active Substance: SOMATROPIN
     Indication: Exercise tolerance increased
     Route: 065
  19. TRAZODONE [Suspect]
     Active Substance: TRAZODONE HYDROCHLORIDE
     Indication: Mixed anxiety and depressive disorder
     Route: 065
  20. TRAZODONE [Suspect]
     Active Substance: TRAZODONE HYDROCHLORIDE
     Indication: Exercise tolerance increased
  21. EZETIMIBE [Concomitant]
     Active Substance: EZETIMIBE
     Indication: Product used for unknown indication

REACTIONS (22)
  - Hypoglycaemia [Unknown]
  - Arteriosclerosis coronary artery [Recovering/Resolving]
  - Coronary artery occlusion [Unknown]
  - Peptic ulcer [Unknown]
  - Secondary hypogonadism [Unknown]
  - Hypertension [Unknown]
  - Chest pain [Unknown]
  - Andropause [Unknown]
  - Blood testosterone increased [Unknown]
  - Insulin-like growth factor increased [Unknown]
  - Irritable bowel syndrome [Unknown]
  - High density lipoprotein decreased [Recovering/Resolving]
  - Drug abuse [Unknown]
  - Performance enhancing product use [Unknown]
  - Off label use [Unknown]
  - Hormone level abnormal [Unknown]
  - Depression [Unknown]
  - Alanine aminotransferase increased [Unknown]
  - Blood triglycerides increased [Unknown]
  - Adverse event [Unknown]
  - Overdose [Unknown]
  - Intentional product misuse [Unknown]
